FAERS Safety Report 13365723 (Version 1)
Quarter: 2017Q1

REPORT INFORMATION
  Report Type: Spontaneous
  Country: US (occurrence: US)
  Receive Date: 20170323
  Receipt Date: 20170323
  Transmission Date: 20170429
  Serious: No
  Sender: FDA-Public Use
  Company Number: US-TEVA-752320USA

PATIENT
  Sex: Female
  Weight: 126.67 kg

DRUGS (1)
  1. SYNRIBO [Suspect]
     Active Substance: OMACETAXINE MEPESUCCINATE
     Indication: CHRONIC MYELOID LEUKAEMIA
     Dosage: 5.36 MILLIGRAM DAILY; HOME ADMINISTRATION
     Dates: start: 20170317

REACTIONS (3)
  - Diarrhoea [Unknown]
  - Injection site pain [Unknown]
  - Pruritus [Unknown]
